FAERS Safety Report 19723724 (Version 3)
Quarter: 2021Q3

REPORT INFORMATION
  Report Type: Spontaneous
  Country: US (occurrence: US)
  Receive Date: 20210820
  Receipt Date: 20210928
  Transmission Date: 20211014
  Serious: No
  Sender: FDA-Public Use
  Company Number: US-TEVA-2021-US-1939090

PATIENT
  Sex: Female

DRUGS (2)
  1. BACTRIM [Concomitant]
     Active Substance: SULFAMETHOXAZOLE\TRIMETHOPRIM
  2. BUDESONIDE. [Suspect]
     Active Substance: BUDESONIDE
     Indication: NASAL IRRIGATION
     Dosage: 0.5MG/2ML VIALS
     Route: 045
     Dates: start: 202105

REACTIONS (7)
  - Oropharyngeal pain [Unknown]
  - Sinus operation [Unknown]
  - Enterobacter test positive [Unknown]
  - Throat irritation [Unknown]
  - Nasal odour [Unknown]
  - Sinusitis [Unknown]
  - Malaise [Unknown]

NARRATIVE: CASE EVENT DATE: 2021
